FAERS Safety Report 9828361 (Version 3)
Quarter: 2014Q1

REPORT INFORMATION
  Report Type: Report from Study
  Country: DE (occurrence: DE)
  Receive Date: 20140117
  Receipt Date: 20140212
  Transmission Date: 20141002
  Serious: Yes (Hospitalization)
  Sender: FDA-Public Use
  Company Number: DE-ASTRAZENECA-2014SE00821

PATIENT
  Age: 16203 Day
  Sex: Male
  Weight: 83 kg

DRUGS (6)
  1. STUDY PROCEDURE [Suspect]
     Route: 065
  2. ANTRA [Suspect]
     Route: 048
     Dates: start: 20131213, end: 20131217
  3. BLINDED SGC-ACTIVATOR BAY1101042 [Suspect]
     Route: 048
     Dates: start: 20131126, end: 20131217
  4. MAALOX [Suspect]
     Route: 048
     Dates: start: 20131126, end: 20131126
  5. RULID [Concomitant]
     Indication: PNEUMONIA
     Route: 048
     Dates: start: 20140101, end: 20140106
  6. NOVAMINSULFON [Concomitant]
     Indication: PNEUMONIA
     Route: 048
     Dates: start: 20140101

REACTIONS (1)
  - Pulmonary embolism [Recovering/Resolving]
